FAERS Safety Report 11399675 (Version 1)
Quarter: 2015Q3

REPORT INFORMATION
  Report Type: Spontaneous
  Country: US (occurrence: None)
  Receive Date: 20150818
  Receipt Date: 20150818
  Transmission Date: 20151125
  Serious: Yes (Hospitalization)
  Sender: FDA-Public Use
  Company Number: None

PATIENT
  Age: 63 Year
  Sex: Female

DRUGS (1)
  1. LUCENTIS [Suspect]
     Active Substance: RANIBIZUMAB
     Indication: HISTOPLASMOSIS
     Route: 047
     Dates: start: 20150807

REACTIONS (1)
  - Endophthalmitis [None]

NARRATIVE: CASE EVENT DATE: 20150807
